FAERS Safety Report 16403402 (Version 1)
Quarter: 2019Q2

REPORT INFORMATION
  Report Type: Spontaneous
  Country: US (occurrence: US)
  Receive Date: 20190501
  Receipt Date: 20190501
  Transmission Date: 20190711
  Serious: Yes (Death, Disabling, Other)
  Sender: FDA-Public Use
  Company Number: None

PATIENT
  Age: 26 Year
  Sex: Male
  Weight: 104.33 kg

DRUGS (3)
  1. QUETIPINE FUMARATE [Suspect]
     Active Substance: QUETIAPINE FUMARATE
     Indication: INSOMNIA
     Dosage: ?          QUANTITY:400-200MG;?
     Route: 048
     Dates: start: 20180707, end: 20190218
  2. VITAMIN D [Concomitant]
     Active Substance: VITAMIN D NOS
  3. MULTIVITAMIN [Concomitant]
     Active Substance: VITAMINS

REACTIONS (8)
  - Joint noise [None]
  - Bradyphrenia [None]
  - Completed suicide [None]
  - Arthralgia [None]
  - Hyperhidrosis [None]
  - Apathy [None]
  - Depression [None]
  - Somnolence [None]

NARRATIVE: CASE EVENT DATE: 20190218
